FAERS Safety Report 25982899 (Version 2)
Quarter: 2025Q4

REPORT INFORMATION
  Report Type: Spontaneous
  Country: JP (occurrence: JP)
  Receive Date: 20251031
  Receipt Date: 20251114
  Transmission Date: 20260117
  Serious: Yes (Death)
  Sender: GLAXOSMITHKLINE
  Company Number: JP-GSKJP-JP2025140475AA

PATIENT
  Sex: Female

DRUGS (1)
  1. MOMELOTINIB [Suspect]
     Active Substance: MOMELOTINIB
     Indication: Myelofibrosis
     Dosage: 200 MG, 1D

REACTIONS (2)
  - Infection [Fatal]
  - General physical health deterioration [Fatal]
